FAERS Safety Report 5642095-3 (Version None)
Quarter: 2008Q1

REPORT INFORMATION
  Report Type: 
  Country: None (occurrence: None)
  Receive Date: 20080131
  Receipt Date: 20071221
  Transmission Date: 20080703
  Serious: Yes (Other)
  Sender: FDA-Public Use
  Company Number: US200712005028

PATIENT
  Age: 65 Year
  Sex: Female

DRUGS (2)
  1. BYETTA [Suspect]
     Indication: TYPE 2 DIABETES MELLITUS
     Dosage: 5 UG, SUBCUTANEOUS
     Route: 058
     Dates: start: 20071102, end: 20071220
  2. EXENATIDE PEN, DISPOSABLE DEVICE (EXENATIDE PEN) [Concomitant]

REACTIONS (1)
  - PANCREATITIS [None]
